FAERS Safety Report 6821675-3 (Version None)
Quarter: 2010Q3

REPORT INFORMATION
  Report Type: 
  Country: None (occurrence: None)
  Receive Date: 20100707
  Receipt Date: 20090318
  Transmission Date: 20110219
  Serious: Yes (Other)
  Sender: FDA-Public Use
  Company Number: US-PFIZER INC-2009168816

PATIENT
  Sex: Female
  Weight: 65.76 kg

DRUGS (5)
  1. SERTRALINE HCL [Suspect]
     Dosage: 100 MG, 1X/DAY
     Route: 048
     Dates: start: 20081201
  2. OXYCODONE HCL [Concomitant]
     Dosage: UNK
     Route: 048
  3. TENORMIN [Concomitant]
     Dosage: UNK
     Route: 048
  4. FLURAZEPAM [Concomitant]
     Dosage: UNK
     Route: 048
  5. BENADRYL [Concomitant]
     Dosage: UNK
     Route: 048

REACTIONS (6)
  - COUGH [None]
  - EYE SWELLING [None]
  - HYPERTENSION [None]
  - PRURITUS [None]
  - PYREXIA [None]
  - RASH [None]
